FAERS Safety Report 5254989-1 (Version None)
Quarter: 2007Q1

REPORT INFORMATION
  Report Type: 
  Country: None (occurrence: None)
  Receive Date: 20070305
  Receipt Date: 20070220
  Transmission Date: 20070707
  Serious: Yes (Death)
  Sender: FDA-Public Use
  Company Number: JP-BRISTOL-MYERS SQUIBB COMPANY-13682935

PATIENT
  Age: 75 Year
  Sex: Male

DRUGS (2)
  1. TAXOL [Suspect]
     Indication: TRANSITIONAL CELL CARCINOMA
     Route: 041
  2. GEMZAR [Concomitant]

REACTIONS (1)
  - GASTROINTESTINAL NECROSIS [None]
